FAERS Safety Report 18747226 (Version 1)
Quarter: 2021Q1

REPORT INFORMATION
  Report Type: Report from Study
  Country: US (occurrence: US)
  Receive Date: 20210115
  Receipt Date: 20210115
  Transmission Date: 20210419
  Serious: Yes (Other)
  Sender: FDA-Public Use
  Company Number: US-SHIRE-US201917871AA

PATIENT
  Age: 42 Year
  Sex: Female

DRUGS (4)
  1. 643 (LANADELUMAB) [Suspect]
     Active Substance: LANADELUMAB
     Indication: IMMUNE SYSTEM DISORDER
     Dosage: 300 MILLIGRAM, Q2WEEKS
     Route: 058
     Dates: start: 20190318
  2. 643 (LANADELUMAB) [Suspect]
     Active Substance: LANADELUMAB
     Dosage: 300 MILLILITER, Q2WEEKS
     Route: 065
     Dates: start: 20190430
  3. FIRAZYR [Suspect]
     Active Substance: ICATIBANT ACETATE
     Indication: PRODUCT USED FOR UNKNOWN INDICATION
     Dosage: 30 MILLILITER, AS REQ^D
     Route: 065
  4. FIRAZYR [Suspect]
     Active Substance: ICATIBANT ACETATE
     Indication: PRODUCT USED FOR UNKNOWN INDICATION
     Dosage: 30 MILLILITER, AS REQ^D
     Route: 065

REACTIONS (10)
  - Influenza like illness [Unknown]
  - Injection site scar [Unknown]
  - Hereditary angioedema [Recovered/Resolved]
  - Pneumonia [Recovered/Resolved]
  - Injection site dermatitis [Unknown]
  - Scar pain [Unknown]
  - Adverse drug reaction [Recovered/Resolved]
  - Injection site reaction [Unknown]
  - Injection site swelling [Recovered/Resolved]
  - Injection site pain [Unknown]

NARRATIVE: CASE EVENT DATE: 20190526
